FAERS Safety Report 7407862-4 (Version None)
Quarter: 2011Q1

REPORT INFORMATION
  Report Type: 
  Country: None (occurrence: None)
  Receive Date: 20110301
  Receipt Date: 20101030
  Transmission Date: 20110831
  Serious: Yes (Other)
  Sender: FDA-Public Use
  Company Number: ALA_01565_2011

PATIENT
  Sex: Female

DRUGS (1)
  1. REGLAN [Suspect]
     Indication: PRODUCT USED FOR UNKNOWN INDICATION
     Dosage: (10 MG ORAL)
     Route: 048
     Dates: start: 20041201, end: 20100301

REACTIONS (1)
  - TARDIVE DYSKINESIA [None]
